FAERS Safety Report 13321911 (Version 1)
Quarter: 2017Q1

REPORT INFORMATION
  Report Type: Spontaneous
  Country: BR (occurrence: BR)
  Receive Date: 20170310
  Receipt Date: 20170310
  Transmission Date: 20170428
  Serious: Yes (Other)
  Sender: FDA-Public Use
  Company Number: BR-BIOMARINAP-BR-2016-112311

PATIENT
  Sex: Male
  Weight: 51 kg

DRUGS (1)
  1. NAGLAZYME [Suspect]
     Active Substance: GALSULFASE
     Indication: MUCOPOLYSACCHARIDOSIS VI
     Dosage: 50 MG, QW
     Route: 042
     Dates: start: 20080825

REACTIONS (3)
  - Corneal opacity [Unknown]
  - Tenderness [Recovered/Resolved]
  - Discomfort [Recovered/Resolved]
